FAERS Safety Report 6747174-5 (Version None)
Quarter: 2010Q2

REPORT INFORMATION
  Report Type: 
  Country: None (occurrence: None)
  Receive Date: 20100528
  Receipt Date: 20100519
  Transmission Date: 20101027
  Serious: Yes (Hospitalization, Other)
  Sender: FDA-Public Use
  Company Number: JP-JNJFOC-20100506425

PATIENT
  Age: 39 Year
  Sex: Male

DRUGS (3)
  1. REMICADE [Suspect]
     Indication: CROHN'S DISEASE
     Route: 042
  2. REMICADE [Suspect]
     Dosage: MORE THAN 50 INFUSIONS
     Route: 042
  3. 5-ASA [Concomitant]
     Indication: CROHN'S DISEASE
     Route: 065

REACTIONS (4)
  - ANAL STENOSIS [None]
  - ILEUS [None]
  - INTESTINAL STENOSIS [None]
  - PYREXIA [None]
